FAERS Safety Report 10067672 (Version 3)
Quarter: 2014Q2

REPORT INFORMATION
  Report Type: Report from Study
  Country: IN (occurrence: IN)
  Receive Date: 20140409
  Receipt Date: 20140428
  Transmission Date: 20141212
  Serious: Yes (Death, Other)
  Sender: FDA-Public Use
  Company Number: IN-SA-2014SA043223

PATIENT
  Age: 14 Year
  Sex: Male
  Weight: 70.4 kg

DRUGS (9)
  1. EVOLTRA [Suspect]
     Indication: ACUTE MYELOID LEUKAEMIA RECURRENT
     Route: 065
     Dates: start: 20140315, end: 20140319
  2. CYCLOPHOSPHAMIDE [Concomitant]
     Dates: start: 20140315, end: 20140319
  3. ETOPOSIDE [Concomitant]
     Dates: start: 20140315, end: 20140319
  4. ALL OTHER THERAPEUTIC PRODUCTS [Concomitant]
     Route: 042
     Dates: start: 20140326, end: 20140403
  5. COLISTIMETHATE SODIUM [Concomitant]
     Dosage: DOSE:3 MILLIUNIT(S)
     Route: 042
     Dates: start: 20140330, end: 20140403
  6. TARGOCID [Concomitant]
     Route: 042
     Dates: start: 20140324, end: 20140403
  7. NEUPOGEN [Concomitant]
     Dates: start: 20140401, end: 20140403
  8. AMPHOTERICIN B [Concomitant]
     Dates: start: 20140331, end: 20140401
  9. VORICONAZOLE [Concomitant]
     Dates: start: 20140320, end: 20140403

REACTIONS (8)
  - Lung consolidation [Unknown]
  - Hepatic lesion [Unknown]
  - Pleural effusion [Unknown]
  - Febrile neutropenia [Unknown]
  - Septic shock [Fatal]
  - Respiratory failure [Fatal]
  - Pancytopenia [Unknown]
  - Sepsis [Fatal]
